FAERS Safety Report 4425294-8 (Version None)
Quarter: 2004Q3

REPORT INFORMATION
  Report Type: 
  Country: None (occurrence: None)
  Receive Date: 20040812
  Receipt Date: 20040812
  Transmission Date: 20050211
  Serious: Yes (Hospitalization)
  Sender: FDA-Public Use
  Company Number: None

PATIENT
  Age: 71 Year
  Sex: Male

DRUGS (12)
  1. SIMVASTATIN [Suspect]
     Indication: HYPERCHOLESTEROLAEMIA
     Dosage: 60 MG ORAL
     Route: 048
     Dates: start: 19990101, end: 20040601
  2. WARFARIN SODIUM [Concomitant]
  3. PROCHLORPERAZINE [Concomitant]
  4. TOLAZAMIDE [Concomitant]
  5. GEMFIBROZIL [Concomitant]
  6. LISINOPRIL [Concomitant]
  7. METOCLOPRAMIDE [Concomitant]
  8. COMBIVENT [Concomitant]
  9. DILTIAZEM [Concomitant]
  10. DOCUSATE [Concomitant]
  11. OMEPRAZOLE [Concomitant]
  12. MORPHINE [Concomitant]

REACTIONS (1)
  - RHABDOMYOLYSIS [None]
